FAERS Safety Report 7034385-7 (Version None)
Quarter: 2010Q4

REPORT INFORMATION
  Report Type: 
  Country: None (occurrence: None)
  Receive Date: 20101008
  Receipt Date: 20101001
  Transmission Date: 20110411
  Serious: Yes (Hospitalization)
  Sender: FDA-Public Use
  Company Number: FR-JNJFOC-20090606373

PATIENT
  Sex: Female

DRUGS (15)
  1. DURAGESIC-100 [Suspect]
     Indication: PAIN
     Route: 062
  2. GEMCITABINE [Suspect]
     Indication: PANCREATIC CARCINOMA
     Dosage: WEEKLY EVERY 3 WEEKS OUT OF 4 (TOTAL DAILY DOSE 1560 MG)
     Route: 042
  3. GEMCITABINE [Suspect]
     Dosage: WEEKLY EVERY 3 WEEKS OUT OF 4 (TOTAL DAILY DOSE 1560 MG)
     Route: 042
  4. AXITINIB [Suspect]
     Indication: PANCREATIC CARCINOMA
     Route: 048
  5. AXITINIB [Suspect]
     Route: 048
  6. ALPRAZOLAM [Concomitant]
     Indication: ANXIETY
  7. ZOPICLONE [Concomitant]
     Indication: INSOMNIA
  8. ESOMEPRAZOLE [Concomitant]
     Indication: GASTROOESOPHAGEAL REFLUX DISEASE
  9. PREDNISOLONE [Concomitant]
     Indication: PROPHYLAXIS OF NAUSEA AND VOMITING
  10. ONDANSETRON HYDROCHLORIDE [Concomitant]
     Indication: PROPHYLAXIS OF NAUSEA AND VOMITING
  11. SIMETICONE [Concomitant]
  12. TRIMEBUTINE MALEATE [Concomitant]
     Indication: ABDOMINAL PAIN
  13. MORPHINE SULFATE [Concomitant]
     Indication: ABDOMINAL PAIN
  14. PHLOROGLUCINOL [Concomitant]
     Indication: ABDOMINAL PAIN
  15. METOCLOPRAMIDE [Concomitant]
     Indication: VOMITING

REACTIONS (1)
  - SUBILEUS [None]
